FAERS Safety Report 5061352-5 (Version None)
Quarter: 2006Q3

REPORT INFORMATION
  Report Type: 
  Country: None (occurrence: None)
  Receive Date: 20060703
  Receipt Date: 20060329
  Transmission Date: 20061208
  Serious: No
  Sender: FDA-Public Use
  Company Number: 2006PV011149

PATIENT
  Age: 70 Year
  Sex: Male
  Weight: 86.1834 kg

DRUGS (2)
  1. SYMLIN [Suspect]
     Indication: DIABETES MELLITUS INSULIN-DEPENDENT
     Dosage: 15 MCG;TID;SC
     Route: 058
     Dates: start: 20060318
  2. HUMALOG OR HUMULIN (PATIENT UNSURE OF NAME) [Concomitant]

REACTIONS (2)
  - BLOOD GLUCOSE DECREASED [None]
  - BLOOD GLUCOSE FLUCTUATION [None]
